FAERS Safety Report 11039108 (Version 3)
Quarter: 2015Q2

REPORT INFORMATION
  Report Type: Spontaneous
  Country: PL (occurrence: PL)
  Receive Date: 20150416
  Receipt Date: 20150519
  Transmission Date: 20150821
  Serious: Yes (Life-Threatening, Hospitalization, Disabling, Other)
  Sender: FDA-Public Use
  Company Number: PL-MERCK-1504POL009164

PATIENT
  Age: 3 Year
  Sex: Male
  Weight: 17.5 kg

DRUGS (11)
  1. PRIVIGEN [Concomitant]
     Active Substance: HUMAN IMMUNOGLOBULIN G
     Indication: INFECTION
     Dosage: TOTAL DAILY DOSE 10 MG
     Dates: start: 20150206, end: 20150209
  2. PRIVIGEN [Concomitant]
     Active Substance: HUMAN IMMUNOGLOBULIN G
     Indication: NEUTROPENIA
  3. MEROPENEM. [Concomitant]
     Active Substance: MEROPENEM
     Indication: INFECTION
     Dosage: 350 MG, TID
     Dates: start: 20150204, end: 20150307
  4. NOXAFIL [Suspect]
     Active Substance: POSACONAZOLE
     Dosage: 160MG, BID (2X4ML)
     Route: 048
     Dates: start: 20150206, end: 20150218
  5. VINCRISTINE SULFATE. [Suspect]
     Active Substance: VINCRISTINE SULFATE
     Dosage: 3 DOSES(3 MG) EVERY 7 DAYS
     Route: 042
     Dates: start: 20150208, end: 20150208
  6. VINCRISTINE SULFATE. [Suspect]
     Active Substance: VINCRISTINE SULFATE
     Indication: ACUTE LYMPHOCYTIC LEUKAEMIA
     Dosage: 3 DOSES(3 MG) EVERY 7 DAYS
     Route: 042
     Dates: start: 20150130, end: 20150130
  7. VINCRISTINE SULFATE. [Suspect]
     Active Substance: VINCRISTINE SULFATE
     Dosage: 3 DOSES(3 MG) EVERY 7 DAYS
     Route: 042
     Dates: start: 20150215, end: 20150215
  8. AMICIN [Concomitant]
     Indication: INFECTION
     Dosage: TOTAL DAILY DOSE 250MG
     Dates: start: 20150204, end: 20150215
  9. ENCORTON [Concomitant]
     Active Substance: PREDNISONE
     Indication: ACUTE LYMPHOCYTIC LEUKAEMIA
     Dosage: TOTAL DAILY DOSE 40MG
     Dates: start: 20150116, end: 20150219
  10. BISEPTOL (SULFAMETHOXAZOLE (+) TRIMETHOPRIM) [Concomitant]
     Indication: PROPHYLAXIS
     Dosage: 300 MG, BID
     Dates: start: 20150116, end: 20150219
  11. BISEPTOL (SULFAMETHOXAZOLE (+) TRIMETHOPRIM) [Concomitant]
     Indication: ACUTE LYMPHOCYTIC LEUKAEMIA

REACTIONS (1)
  - Ileus paralytic [Recovered/Resolved]

NARRATIVE: CASE EVENT DATE: 20150225
